FAERS Safety Report 21694552 (Version 1)
Quarter: 2022Q4

REPORT INFORMATION
  Report Type: Spontaneous
  Country: CA (occurrence: CA)
  Receive Date: 20221207
  Receipt Date: 20221207
  Transmission Date: 20230112
  Serious: Yes (Other)
  Sender: FDA-Public Use
  Company Number: None

PATIENT
  Age: 83 Year
  Sex: Female

DRUGS (17)
  1. LANTUS [Suspect]
     Active Substance: INSULIN GLARGINE
     Indication: Type 2 diabetes mellitus
     Dosage: 28 IU, QD
     Route: 058
  2. INSULIN GLULISINE [Suspect]
     Active Substance: INSULIN GLULISINE
     Indication: Type 2 diabetes mellitus
     Dosage: UNK UNK, Q8H
     Route: 058
  3. LINAGLIPTIN [Suspect]
     Active Substance: LINAGLIPTIN
     Indication: Type 2 diabetes mellitus
     Dosage: 5 MG, QD
     Route: 048
  4. FUROSEMIDE [Concomitant]
     Active Substance: FUROSEMIDE
     Indication: Cardiac disorder
     Dosage: 40 MG, QD
     Route: 048
  5. FUROSEMIDE [Concomitant]
     Active Substance: FUROSEMIDE
     Indication: Blood pressure abnormal
  6. AMLODIPINE [Concomitant]
     Active Substance: AMLODIPINE BESYLATE
     Indication: Cardiac disorder
     Dosage: 5 MG, QD
     Route: 048
  7. AMLODIPINE [Concomitant]
     Active Substance: AMLODIPINE BESYLATE
     Indication: Blood pressure abnormal
  8. CELEBREX [Concomitant]
     Active Substance: CELECOXIB
     Indication: Product used for unknown indication
     Dosage: UNK
  9. COLCHICINE [Concomitant]
     Active Substance: COLCHICINE
     Indication: Product used for unknown indication
     Dosage: UNK
  10. HYDROMORPHONE [Concomitant]
     Active Substance: HYDROMORPHONE
     Dosage: UNK
  11. PERPHENAZINE [Concomitant]
     Active Substance: PERPHENAZINE
     Indication: Product used for unknown indication
     Dosage: UNK
  12. RAMIPRIL [Concomitant]
     Active Substance: RAMIPRIL
     Indication: Cardiac disorder
     Dosage: 10 MG, QD
     Route: 048
  13. RAMIPRIL [Concomitant]
     Active Substance: RAMIPRIL
     Indication: Blood pressure abnormal
  14. TERAZOSIN [Concomitant]
     Active Substance: TERAZOSIN HYDROCHLORIDE
     Indication: Cardiac disorder
     Dosage: 2 MG, QD
     Route: 048
  15. TERAZOSIN [Concomitant]
     Active Substance: TERAZOSIN HYDROCHLORIDE
     Indication: Blood pressure abnormal
  16. XARELTO [Concomitant]
     Active Substance: RIVAROXABAN
     Indication: Cardiac disorder
     Dosage: 10 MG, QD
     Route: 048
  17. XARELTO [Concomitant]
     Active Substance: RIVAROXABAN
     Indication: Blood pressure abnormal

REACTIONS (4)
  - Cardiac failure congestive [Not Recovered/Not Resolved]
  - Dyspnoea [Not Recovered/Not Resolved]
  - Oedema peripheral [Not Recovered/Not Resolved]
  - Knee arthroplasty [Not Recovered/Not Resolved]
